FAERS Safety Report 5066151-6 (Version None)
Quarter: 2006Q3

REPORT INFORMATION
  Report Type: 
  Country: None (occurrence: None)
  Receive Date: 20060725
  Receipt Date: 20060710
  Transmission Date: 20061208
  Serious: Yes (Hospitalization)
  Sender: FDA-Public Use
  Company Number: CIP06001604

PATIENT
  Age: 11 Month
  Weight: 8 kg

DRUGS (1)
  1. DANTRIUM [Suspect]
     Indication: CEREBRAL PALSY
     Dosage: ORAL
     Route: 048
     Dates: start: 20060701, end: 20060701

REACTIONS (2)
  - BLOOD CREATINE PHOSPHOKINASE INCREASED [None]
  - PYREXIA [None]
